FAERS Safety Report 19731486 (Version 1)
Quarter: 2021Q3

REPORT INFORMATION
  Report Type: Spontaneous
  Country: IT (occurrence: IT)
  Receive Date: 20210820
  Receipt Date: 20210820
  Transmission Date: 20211014
  Serious: Yes (Other)
  Sender: FDA-Public Use
  Company Number: IT-ASTRAZENECA-2021A685737

PATIENT
  Age: 42 Year
  Sex: Female

DRUGS (4)
  1. FULVESTRANT. [Suspect]
     Active Substance: FULVESTRANT
     Indication: BREAST CANCER
     Dosage: 500.0MG UNKNOWN
     Route: 030
  2. FULVESTRANT. [Suspect]
     Active Substance: FULVESTRANT
     Indication: BREAST CANCER STAGE IV
     Dosage: 500.0MG UNKNOWN
     Route: 030
  3. PALBOCICLIB [Suspect]
     Active Substance: PALBOCICLIB
     Indication: BREAST CANCER
     Dosage: 125.0MG UNKNOWN
     Route: 048
  4. PALBOCICLIB [Suspect]
     Active Substance: PALBOCICLIB
     Indication: BREAST CANCER STAGE IV
     Dosage: 125.0MG UNKNOWN
     Route: 048

REACTIONS (1)
  - Skin hypopigmentation [Recovering/Resolving]
